FAERS Safety Report 9238195 (Version 1)
Quarter: 2013Q2

REPORT INFORMATION
  Report Type: Spontaneous
  Country: BR (occurrence: None)
  Receive Date: 20130416
  Receipt Date: 20130416
  Transmission Date: 20140414
  Serious: Yes (Death, Hospitalization, Other)
  Sender: FDA-Public Use
  Company Number: 2013-001103

PATIENT
  Age: 80 Year
  Sex: Female
  Weight: 50 kg

DRUGS (3)
  1. ACTONEL (RISEDRONATE SODIUM) TABLET, 150MG [Suspect]
     Indication: OSTEOPOROSIS
     Route: 048
  2. ACTONEL (RISEDRONATE SODIUM) TABLET, 150MG [Suspect]
     Route: 048
  3. CALCIUM (CALCIUM) [Concomitant]

REACTIONS (8)
  - Multi-organ failure [None]
  - Tumour invasion [None]
  - Asthenia [None]
  - Gallbladder disorder [None]
  - Abdominal pain upper [None]
  - Weight decreased [None]
  - Mass [None]
  - Gastrointestinal disorder [None]
